FAERS Safety Report 8850542 (Version 1)
Quarter: 2012Q4

REPORT INFORMATION
  Report Type: 
  Country: US (occurrence: US)
  Receive Date: 20121019
  Receipt Date: 20121019
  Transmission Date: 20130627
  Serious: Yes (Other)
  Sender: FDA-Public Use
  Company Number: CHPA2012US021451

PATIENT
  Age: 58 Year
  Sex: Female

DRUGS (4)
  1. EX-LAX REG STR CHOCOLATED LAX PCS SEN [Suspect]
     Indication: CONSTIPATION
     Dosage: 1 piece, once per week
     Route: 048
     Dates: start: 2006, end: 2008
  2. EX-LAX REG STR CHOCOLATED LAX PCS SEN [Suspect]
     Dosage: 1 piece, every other day
     Route: 048
     Dates: start: 2006, end: 2008
  3. BENEFIBER ORANGE POWDER [Suspect]
     Dosage: 1/2 cup every night
     Dates: start: 2008
  4. LIPITOR                                 /NET/ [Concomitant]
     Indication: BLOOD CHOLESTEROL INCREASED
     Dosage: UNK
     Route: 048
     Dates: start: 2006

REACTIONS (6)
  - Ligament rupture [Recovered/Resolved]
  - Meniscus injury [Recovered/Resolved]
  - Fall [Unknown]
  - Oedema peripheral [Recovered/Resolved]
  - Contusion [Unknown]
  - Walking aid user [Unknown]
